FAERS Safety Report 5141505-8 (Version None)
Quarter: 2006Q4

REPORT INFORMATION
  Report Type: 
  Country: None (occurrence: None)
  Receive Date: 20061030
  Receipt Date: 20061030
  Transmission Date: 20070319
  Serious: Yes (Hospitalization, Other)
  Sender: FDA-Public Use
  Company Number: None

PATIENT
  Age: 25 Year
  Sex: Male
  Weight: 58.9676 kg

DRUGS (2)
  1. ZONEGRAN [Suspect]
     Indication: CONVULSION
     Dosage: 1 CAP 2 TIMES / DAY THREE TIMES A DAY BUCCAL
     Route: 002
     Dates: start: 20060505, end: 20061009
  2. KEPPRA [Suspect]
     Dosage: 1/2 TAB TWICE A DAY BUCCAL
     Route: 002
     Dates: start: 20061001, end: 20061001

REACTIONS (6)
  - ABNORMAL BEHAVIOUR [None]
  - CONDITION AGGRAVATED [None]
  - CONVULSION [None]
  - PARANOIA [None]
  - PSYCHOTIC DISORDER [None]
  - THERAPEUTIC RESPONSE UNEXPECTED WITH DRUG SUBSTITUTION [None]
